FAERS Safety Report 16320672 (Version 1)
Quarter: 2019Q2

REPORT INFORMATION
  Report Type: Spontaneous
  Country: DE (occurrence: DE)
  Receive Date: 20190516
  Receipt Date: 20190516
  Transmission Date: 20190711
  Serious: Yes (Life-Threatening, Other)
  Sender: FDA-Public Use
  Company Number: PHHY2019DE107097

PATIENT
  Sex: Male

DRUGS (12)
  1. IMATINIB. [Suspect]
     Active Substance: IMATINIB MESYLATE
     Indication: SYSTEMIC SCLERODERMA
     Dosage: 400 MG, QD
     Route: 065
     Dates: start: 2009
  2. FOLINIC ACID [Concomitant]
     Active Substance: LEUCOVORIN
     Indication: COLON CANCER
     Dosage: ADJUVANT FOLFOX THERAPY
     Route: 065
  3. DASATINIB. [Suspect]
     Active Substance: DASATINIB
     Indication: CHRONIC MYELOID LEUKAEMIA
     Dosage: UNK
     Route: 065
  4. FLUOROURACIL. [Concomitant]
     Active Substance: FLUOROURACIL
     Indication: COLON CANCER
     Dosage: ADJUVANT FOLFOX THERAPY
     Route: 065
  5. FLUOROURACIL. [Concomitant]
     Active Substance: FLUOROURACIL
     Indication: METASTASES TO LIVER
  6. IMATINIB. [Suspect]
     Active Substance: IMATINIB MESYLATE
     Dosage: 400 MG, QD
     Route: 065
     Dates: start: 2004
  7. FLUOROURACIL. [Concomitant]
     Active Substance: FLUOROURACIL
     Indication: RECTOSIGMOID CANCER
  8. NILOTINIB [Concomitant]
     Active Substance: NILOTINIB
     Indication: CHRONIC MYELOID LEUKAEMIA
     Dosage: UNK
     Route: 065
  9. FOLINIC ACID [Concomitant]
     Active Substance: LEUCOVORIN
     Indication: RECTOSIGMOID CANCER
  10. OXALIPLATIN. [Concomitant]
     Active Substance: OXALIPLATIN
     Indication: COLON CANCER
     Dosage: ADJUVANT FOLFOX THERAPY
     Route: 065
  11. OXALIPLATIN. [Concomitant]
     Active Substance: OXALIPLATIN
     Indication: RECTOSIGMOID CANCER
  12. IMATINIB. [Suspect]
     Active Substance: IMATINIB MESYLATE
     Indication: CHRONIC MYELOID LEUKAEMIA
     Dosage: 600 MG, QD
     Route: 065

REACTIONS (5)
  - Rectosigmoid cancer [Recovered/Resolved]
  - Metastases to liver [Recovered/Resolved]
  - Prostate cancer [Recovered/Resolved]
  - B-cell small lymphocytic lymphoma [Recovered/Resolved]
  - Pleural effusion [Unknown]

NARRATIVE: CASE EVENT DATE: 2013
